FAERS Safety Report 10065372 (Version 1)
Quarter: 2014Q2

REPORT INFORMATION
  Report Type: Spontaneous
  Country: US (occurrence: US)
  Receive Date: 20140408
  Receipt Date: 20140408
  Transmission Date: 20141212
  Serious: Yes (Other)
  Sender: FDA-Public Use
  Company Number: US-GLAXOSMITHKLINE-A1047959A

PATIENT
  Age: 79 Year
  Sex: Female

DRUGS (2)
  1. VOTRIENT [Suspect]
     Indication: RENAL CANCER
     Dosage: 600MG PER DAY
     Route: 065
  2. BIOTENE MOUTHWASH [Concomitant]

REACTIONS (21)
  - Pneumonia [Unknown]
  - Constipation [Unknown]
  - Diarrhoea [Not Recovered/Not Resolved]
  - Weight decreased [Unknown]
  - Dry mouth [Unknown]
  - Oral pain [Not Recovered/Not Resolved]
  - Dyspnoea [Not Recovered/Not Resolved]
  - Muscular weakness [Not Recovered/Not Resolved]
  - Paraesthesia [Not Recovered/Not Resolved]
  - Skin discolouration [Not Recovered/Not Resolved]
  - Anal haemorrhage [Unknown]
  - Laceration [Unknown]
  - Skin ulcer [Unknown]
  - Haemorrhage [Unknown]
  - Abdominal discomfort [Unknown]
  - Abdominal distension [Unknown]
  - Pain [Unknown]
  - Hypoaesthesia [Unknown]
  - Yellow skin [Unknown]
  - Hair texture abnormal [Unknown]
  - Blood pressure increased [Unknown]
